FAERS Safety Report 9850100 (Version 1)
Quarter: 2013Q4

REPORT INFORMATION
  Report Type: Spontaneous
  Country: US (occurrence: None)
  Receive Date: 20131226
  Receipt Date: 20131226
  Transmission Date: 20140711
  Serious: Yes (Hospitalization)
  Sender: FDA-Public Use
  Company Number: PHEH2012US014650

PATIENT
  Sex: 0

DRUGS (1)
  1. SANDOSTATIN [Suspect]
     Dosage: , SUBCUTANEOUS

REACTIONS (1)
  - Vomiting [None]
